FAERS Safety Report 18556888 (Version 2)
Quarter: 2020Q4

REPORT INFORMATION
  Report Type: Spontaneous
  Country: US (occurrence: US)
  Receive Date: 20201129
  Receipt Date: 20201205
  Transmission Date: 20210114
  Serious: No
  Sender: FDA-Public Use
  Company Number: US-JNJFOC-20201135692

PATIENT
  Age: 77 Year
  Sex: Female
  Weight: 71.28 kg

DRUGS (2)
  1. XARELTO [Suspect]
     Active Substance: RIVAROXABAN
     Indication: THROMBOSIS
     Route: 048
     Dates: start: 20201101
  2. FLUOROMETHOLONE. [Concomitant]
     Active Substance: FLUOROMETHOLONE
     Route: 031

REACTIONS (6)
  - Tooth disorder [Unknown]
  - Dehydration [Not Recovered/Not Resolved]
  - Discomfort [Unknown]
  - Orthostatic hypotension [Not Recovered/Not Resolved]
  - Toothache [Unknown]
  - Dizziness [Not Recovered/Not Resolved]

NARRATIVE: CASE EVENT DATE: 20201101
